FAERS Safety Report 4427566-X (Version None)
Quarter: 2004Q3

REPORT INFORMATION
  Report Type: 
  Country: None (occurrence: None)
  Receive Date: 20040812
  Receipt Date: 20040729
  Transmission Date: 20050211
  Serious: Yes (Hospitalization)
  Sender: FDA-Public Use
  Company Number: FABR-10531

PATIENT
  Sex: Male

DRUGS (1)
  1. FABRAZYME [Suspect]
     Indication: FABRY'S DISEASE
     Dates: start: 20040101

REACTIONS (6)
  - AGGRESSION [None]
  - CELLULITIS [None]
  - CHILLS [None]
  - CONFUSIONAL STATE [None]
  - DIALYSIS [None]
  - SEPSIS [None]
